FAERS Safety Report 8008495-1 (Version None)
Quarter: 2011Q4

REPORT INFORMATION
  Report Type: 
  Country: None (occurrence: None)
  Receive Date: 20111227
  Receipt Date: 20111219
  Transmission Date: 20120403
  Serious: Yes (Death)
  Sender: FDA-Public Use
  Company Number: FR-ROCHE-1023482

PATIENT
  Age: 81 Year
  Sex: Female

DRUGS (7)
  1. CARBOPLATIN [Concomitant]
  2. FLUOROURACIL [Concomitant]
     Dosage: 6 COURSES
  3. TAXOL [Concomitant]
  4. LEUCOVORIN CALCIUM [Concomitant]
     Dosage: 6 COURSES
  5. ARIXTRA [Concomitant]
     Indication: DEEP VEIN THROMBOSIS
  6. AVASTIN [Suspect]
     Indication: PRODUCT USED FOR UNKNOWN INDICATION
     Route: 042
     Dates: start: 20100927, end: 20101209
  7. CISPLATIN [Concomitant]
     Dosage: 6 COURSES

REACTIONS (2)
  - INFECTIOUS PERITONITIS [None]
  - GASTROINTESTINAL PERFORATION [None]
